FAERS Safety Report 10039234 (Version 1)
Quarter: 2014Q1

REPORT INFORMATION
  Report Type: Spontaneous
  Country: US (occurrence: US)
  Receive Date: 20140326
  Receipt Date: 20140326
  Transmission Date: 20141002
  Serious: Yes (Other)
  Sender: FDA-Public Use
  Company Number: ALCN2014US001915

PATIENT
  Age: 70 Year
  Sex: Male

DRUGS (1)
  1. PREDNISOLONE ACETATE [Suspect]
     Dosage: 1 GTT, TID
     Route: 047

REACTIONS (1)
  - Endophthalmitis [Unknown]
